FAERS Safety Report 9142582 (Version 2)
Quarter: 2013Q4

REPORT INFORMATION
  Report Type: Spontaneous
  Country: AU (occurrence: AU)
  Receive Date: 20130306
  Receipt Date: 20131022
  Transmission Date: 20140711
  Serious: No
  Sender: FDA-Public Use
  Company Number: AU-JNJFOC-20130213192

PATIENT
  Sex: Female

DRUGS (1)
  1. DUROGESIC [Suspect]
     Indication: PAIN
     Route: 062

REACTIONS (2)
  - Wrong technique in drug usage process [Unknown]
  - Product adhesion issue [Unknown]
